FAERS Safety Report 10557668 (Version 1)
Quarter: 2014Q4

REPORT INFORMATION
  Report Type: Spontaneous
  Country: US (occurrence: None)
  Receive Date: 20141030
  Receipt Date: 20141030
  Transmission Date: 20150529
  Serious: Yes (Other)
  Sender: FDA-Public Use
  Company Number: None

PATIENT
  Age: 28 Year
  Sex: Male

DRUGS (1)
  1. COPAXONE [Suspect]
     Active Substance: GLATIRAMER ACETATE
     Indication: MULTIPLE SCLEROSIS
     Dosage: STRENGTH: 20MG, DOSE FORM: INJECTABLE, ROUTE: SUBCUTANEOUS 057, FREQUENCY: DAILY
     Route: 058
     Dates: start: 201407, end: 201410

REACTIONS (5)
  - Diarrhoea [None]
  - Cold sweat [None]
  - Malaise [None]
  - Vomiting [None]
  - Chills [None]

NARRATIVE: CASE EVENT DATE: 20141009
